FAERS Safety Report 4379101-2 (Version None)
Quarter: 2004Q2

REPORT INFORMATION
  Report Type: 
  Country: None (occurrence: None)
  Receive Date: 20040610
  Receipt Date: 20040520
  Transmission Date: 20050107
  Serious: Yes (Death, Other)
  Sender: FDA-Public Use
  Company Number: 2004023721

PATIENT
  Age: 26 Year
  Sex: Male
  Weight: 90.7194 kg

DRUGS (4)
  1. GEODON [Suspect]
     Indication: MENTAL DISORDER
     Dosage: ORAL
     Route: 048
  2. CAFFEINE (CAFEINE) [Suspect]
     Indication: ILL-DEFINED DISORDER
  3. DOXEPIN HCL [Concomitant]
  4. ALL OTHER THERAPEUTIC PRODUCTS (ALL OTHER THERAPEUTIC PRODUCTS) [Concomitant]

REACTIONS (3)
  - CAFFEINE CONSUMPTION [None]
  - HYPOKALAEMIA [None]
  - VOMITING [None]
